FAERS Safety Report 24390009 (Version 1)
Quarter: 2024Q4

REPORT INFORMATION
  Report Type: Spontaneous
  Country: US (occurrence: US)
  Receive Date: 20241003
  Receipt Date: 20241003
  Transmission Date: 20250115
  Serious: Yes (Life-Threatening, Hospitalization, Other)
  Sender: AMGEN
  Company Number: US-AMGEN-USASP2024193350

PATIENT
  Age: 34 Year
  Sex: Female

DRUGS (1)
  1. PREDNISONE [Suspect]
     Active Substance: PREDNISONE
     Indication: Sarcoidosis
     Dosage: UNK
     Route: 065

REACTIONS (7)
  - Respiratory muscle weakness [Unknown]
  - Hydrocephalus [Unknown]
  - Meningitis fungal [Unknown]
  - Myelopathy [Unknown]
  - Disseminated blastomycosis [Unknown]
  - Spinal cord compression [Unknown]
  - Central nervous system lesion [Unknown]

NARRATIVE: CASE EVENT DATE: 20230101
